FAERS Safety Report 7133391-1 (Version None)
Quarter: 2010Q4

REPORT INFORMATION
  Report Type: 
  Country: None (occurrence: None)
  Receive Date: 20101117
  Receipt Date: 20101021
  Transmission Date: 20110411
  Serious: No
  Sender: FDA-Public Use
  Company Number: 2010-00914

PATIENT
  Sex: Female

DRUGS (1)
  1. ZICAM ORAL PRODUCTS [Suspect]

REACTIONS (2)
  - AGEUSIA [None]
  - PRODUCT QUALITY ISSUE [None]
